FAERS Safety Report 4274256-2 (Version None)
Quarter: 2004Q1

REPORT INFORMATION
  Report Type: 
  Country: None (occurrence: None)
  Receive Date: 20040115
  Receipt Date: 20040106
  Transmission Date: 20041129
  Serious: Yes (Life-Threatening, Hospitalization)
  Sender: FDA-Public Use
  Company Number: 163-20785-03110336

PATIENT
  Age: 70 Year
  Sex: Male

DRUGS (4)
  1. THALOMID [Suspect]
     Indication: MULTIPLE MYELOMA
     Dosage: 200 MG, QHS, ORAL
     Route: 048
     Dates: start: 20030930, end: 20031014
  2. VINCRISTINE [Concomitant]
  3. ADRIAMYCIN PFS [Concomitant]
  4. DECADRON [Concomitant]

REACTIONS (4)
  - DELIRIUM [None]
  - HYPOXIA [None]
  - MENTAL STATUS CHANGES [None]
  - PNEUMONITIS [None]
